FAERS Safety Report 26090702 (Version 3)
Quarter: 2025Q4

REPORT INFORMATION
  Report Type: Report from Study
  Country: US (occurrence: US)
  Receive Date: 20251126
  Receipt Date: 20251201
  Transmission Date: 20260117
  Serious: Yes (Hospitalization, Other)
  Sender: TEVA
  Company Number: US-TEVA-VS-3395187

PATIENT
  Age: 68 Year
  Sex: Female

DRUGS (2)
  1. AUSTEDO XR [Suspect]
     Active Substance: DEUTETRABENAZINE
     Indication: Tardive dyskinesia
     Dosage: QD
     Route: 048
  2. AUSTEDO XR [Suspect]
     Active Substance: DEUTETRABENAZINE
     Indication: Tardive dyskinesia
     Dosage: QD
     Route: 065

REACTIONS (15)
  - Feeling abnormal [Not Recovered/Not Resolved]
  - Dysphagia [Unknown]
  - Cough [Not Recovered/Not Resolved]
  - Oropharyngeal pain [Unknown]
  - Balance disorder [Recovered/Resolved]
  - Pharyngeal swelling [Unknown]
  - Pollakiuria [Not Recovered/Not Resolved]
  - Gastrooesophageal reflux disease [Unknown]
  - Somnolence [Recovered/Resolved]
  - Hypersensitivity [Unknown]
  - Mental disorder [Unknown]
  - Frequent bowel movements [Not Recovered/Not Resolved]
  - Depressed mood [Recovered/Resolved]
  - Dry mouth [Not Recovered/Not Resolved]
  - Swelling [Unknown]

NARRATIVE: CASE EVENT DATE: 20251101
